FAERS Safety Report 9730733 (Version 1)
Quarter: 2013Q4

REPORT INFORMATION
  Report Type: Spontaneous
  Country: GB (occurrence: GB)
  Receive Date: 20131202
  Receipt Date: 20131202
  Transmission Date: 20140711
  Serious: Yes (Other)
  Sender: FDA-Public Use
  Company Number: GB-009507513-1312GBR000386

PATIENT
  Age: 66 Year
  Sex: Male
  Weight: 77.3 kg

DRUGS (1)
  1. SITAGLIPTIN PHOSPHATE [Suspect]
     Route: 048

REACTIONS (3)
  - Decreased appetite [Recovered/Resolved]
  - Abdominal pain upper [Recovered/Resolved]
  - Abdominal discomfort [Recovered/Resolved]
